FAERS Safety Report 15547228 (Version 1)
Quarter: 2018Q4

REPORT INFORMATION
  Report Type: Report from Study
  Country: GB (occurrence: GB)
  Receive Date: 20181024
  Receipt Date: 20181024
  Transmission Date: 20190205
  Serious: Yes (Death)
  Sender: FDA-Public Use
  Company Number: GB-JNJFOC-20181029678

PATIENT
  Age: 47 Year
  Sex: Female
  Weight: 70 kg

DRUGS (3)
  1. AZATHIOPRINE. [Suspect]
     Active Substance: AZATHIOPRINE
     Indication: CROHN^S DISEASE
     Dosage: CUMULATIVE DOSE TO FIRST REACTION 45500 MG
     Route: 048
     Dates: start: 20160413, end: 20170728
  2. MESALAZINE [Suspect]
     Active Substance: MESALAMINE
     Indication: CROHN^S DISEASE
     Dosage: CUMULATIVE DOSE TO FIRST REACTION 4380 GRAM
     Route: 065
     Dates: start: 20141104, end: 20170727
  3. INFLIXIMAB, RECOMBINANT [Suspect]
     Active Substance: INFLIXIMAB
     Indication: CROHN^S DISEASE
     Dosage: CUMULATIVE DOSE TO FIRST REACTION 65 MG/KG
     Route: 042
     Dates: start: 20160428, end: 20170511

REACTIONS (3)
  - Product use issue [Unknown]
  - Metastatic malignant melanoma [Fatal]
  - Off label use [Unknown]

NARRATIVE: CASE EVENT DATE: 20160428
